FAERS Safety Report 4449500-9 (Version None)
Quarter: 2004Q3

REPORT INFORMATION
  Report Type: 
  Country: None (occurrence: None)
  Receive Date: 20040913
  Receipt Date: 20040913
  Transmission Date: 20050211
  Serious: Yes (Other)
  Sender: FDA-Public Use
  Company Number: None

PATIENT
  Sex: Female
  Weight: 104.3273 kg

DRUGS (3)
  1. ZOLOFT [Suspect]
     Indication: AGORAPHOBIA
     Dosage: 100 MG  1 X DAY
     Dates: start: 19990801, end: 20040911
  2. ZOLOFT [Suspect]
     Indication: DEPRESSION
     Dosage: 100 MG  1 X DAY
     Dates: start: 19990801, end: 20040911
  3. ZOLOFT [Suspect]
     Indication: PANIC DISORDER
     Dosage: 100 MG  1 X DAY
     Dates: start: 19990801, end: 20040911

REACTIONS (4)
  - ABNORMAL BEHAVIOUR [None]
  - ANGER [None]
  - DEPRESSION [None]
  - DRUG WITHDRAWAL SYNDROME [None]
